FAERS Safety Report 8572297-8 (Version None)
Quarter: 2012Q3

REPORT INFORMATION
  Report Type: 
  Country: None (occurrence: None)
  Receive Date: 20120806
  Receipt Date: 20120728
  Transmission Date: 20120928
  Serious: No
  Sender: FDA-Public Use
  Company Number: IN-B.I. PHARMACEUTICALS,INC./RIDGEFIELD-2012-CS-01090IG

PATIENT
  Age: 23 Year
  Sex: Male

DRUGS (1)
  1. TRAJENTA [Suspect]
     Indication: DIABETES MELLITUS
     Dosage: 5 MG
     Route: 048
     Dates: start: 20120704

REACTIONS (2)
  - EYE SWELLING [None]
  - BLOOD GLUCOSE INCREASED [None]
